FAERS Safety Report 13263531 (Version 1)
Quarter: 2017Q1

REPORT INFORMATION
  Report Type: Spontaneous
  Country: US (occurrence: US)
  Receive Date: 20170221
  Receipt Date: 20170221
  Transmission Date: 20170428
  Serious: Yes (Disabling)
  Sender: FDA-Public Use
  Company Number: None

PATIENT
  Age: 72 Year
  Sex: Male
  Weight: 65.7 kg

DRUGS (10)
  1. PROBIOTIC [Concomitant]
     Active Substance: PROBIOTICS NOS
  2. TUMS [Concomitant]
     Active Substance: CALCIUM CARBONATE
  3. VITAMIN B12 [Concomitant]
     Active Substance: CYANOCOBALAMIN
  4. PROMETHAZINE [Concomitant]
     Active Substance: PROMETHAZINE\PROMETHAZINE HYDROCHLORIDE
  5. DOCUSATE SODIUM. [Concomitant]
     Active Substance: DOCUSATE SODIUM
  6. EMETROL [Concomitant]
     Active Substance: DEXTROSE\FRUCTOSE\PHOSPHORIC ACID
  7. VALIUM [Concomitant]
     Active Substance: DIAZEPAM
  8. MIRALAX [Concomitant]
     Active Substance: POLYETHYLENE GLYCOL 3350
  9. MILK OF MAGNESIA [Concomitant]
     Active Substance: MAGNESIUM HYDROXIDE
  10. CIPROFLOXACIN HCL [Suspect]
     Active Substance: CIPROFLOXACIN HYDROCHLORIDE
     Indication: PROSTATITIS
     Dosage: ?          QUANTITY:30 TABLET(S);?
     Route: 048
     Dates: start: 20170113, end: 20170128

REACTIONS (3)
  - Nausea [None]
  - Malaise [None]
  - Tremor [None]

NARRATIVE: CASE EVENT DATE: 20170128
